FAERS Safety Report 15622165 (Version 2)
Quarter: 2018Q4

REPORT INFORMATION
  Report Type: Spontaneous
  Country: JP (occurrence: JP)
  Receive Date: 20181115
  Receipt Date: 20181130
  Transmission Date: 20190205
  Serious: Yes (Hospitalization, Other)
  Sender: FDA-Public Use
  Company Number: JP-GLAXOSMITHKLINE-JP2018JPN206023

PATIENT
  Age: 79 Year
  Sex: Female

DRUGS (1)
  1. VALTREX [Suspect]
     Active Substance: VALACYCLOVIR HYDROCHLORIDE
     Indication: HERPES ZOSTER
     Dosage: 250 MG, UNK
     Route: 048

REACTIONS (4)
  - Toxicity to various agents [Unknown]
  - Toxic encephalopathy [Unknown]
  - Altered state of consciousness [Unknown]
  - Movement disorder [Unknown]
